FAERS Safety Report 26212459 (Version 1)
Quarter: 2025Q4

REPORT INFORMATION
  Report Type: Spontaneous
  Country: US (occurrence: US)
  Receive Date: 20251230
  Receipt Date: 20251230
  Transmission Date: 20260118
  Serious: Yes (Other)
  Sender: CATALYST PHARMA
  Company Number: US-CATALYST PHARMACEUTICALS, INC-US-CATA-25-01416

PATIENT
  Sex: Female
  Weight: 75.737 kg

DRUGS (8)
  1. FIRDAPSE [Suspect]
     Active Substance: AMIFAMPRIDINE PHOSPHATE
     Indication: Myasthenic syndrome
     Dosage: 15 MG A DAY
     Route: 048
     Dates: start: 20250131, end: 2025
  2. FIRDAPSE [Suspect]
     Active Substance: AMIFAMPRIDINE PHOSPHATE
     Dosage: TWO TABLET FOUR TIMES A DAY (80 MG)
     Route: 048
     Dates: start: 20250513
  3. AMLODIPINE [Concomitant]
     Active Substance: AMLODIPINE BESYLATE
     Indication: Hypertension
     Dosage: 2.5 MG DAILY
     Route: 065
  4. ADULT MULTIVITAMIN [Concomitant]
     Indication: Hypovitaminosis
     Dosage: ONE DAILY
     Route: 065
  5. ELIQUIS [Concomitant]
     Active Substance: APIXABAN
     Indication: Thrombosis prophylaxis
     Dosage: 5 MG TWICE DAILY
     Route: 065
  6. MIDODRINE [Concomitant]
     Active Substance: MIDODRINE
     Indication: Orthostatic hypertension
     Dosage: 2.5 MG TWICE DAILY
     Route: 065
  7. HUMAN IMMUNOGLOBULIN G [Concomitant]
     Active Substance: HUMAN IMMUNOGLOBULIN G
     Indication: Myasthenic syndrome
     Dosage: MONTHLY
     Route: 065
  8. VITAMIN D AND K [Concomitant]
     Indication: Hypovitaminosis
     Dosage: DAILY
     Route: 065

REACTIONS (3)
  - Small cell lung cancer recurrent [Not Recovered/Not Resolved]
  - Nasal discomfort [Unknown]
  - Hypoaesthesia oral [Unknown]

NARRATIVE: CASE EVENT DATE: 20250101
